FAERS Safety Report 12744577 (Version 1)
Quarter: 2016Q3

REPORT INFORMATION
  Report Type: Spontaneous
  Country: US (occurrence: US)
  Receive Date: 20160914
  Receipt Date: 20160914
  Transmission Date: 20161109
  Serious: No
  Sender: FDA-Public Use
  Company Number: US-JAZZ-2016-US-009426

PATIENT
  Age: 56 Year
  Sex: Female

DRUGS (34)
  1. BUSPIRONE HCL [Concomitant]
     Active Substance: BUSPIRONE HYDROCHLORIDE
  2. PLEXION [Concomitant]
     Active Substance: SULFACETAMIDE SODIUM\SULFUR
  3. ZANAFLEX [Concomitant]
     Active Substance: TIZANIDINE HYDROCHLORIDE
  4. HYDROCODONE/ACETAMINOPHEN [Concomitant]
     Active Substance: ACETAMINOPHEN\HYDROCODONE
  5. ENTOCORT [Concomitant]
     Active Substance: BUDESONIDE
  6. IRON [Concomitant]
     Active Substance: IRON
  7. TRILEPTAL [Concomitant]
     Active Substance: OXCARBAZEPINE
  8. VITAMIN B12 + FOLIC ACID [Concomitant]
  9. XYREM [Suspect]
     Active Substance: SODIUM OXYBATE
     Dosage: 4 G, BID
     Route: 048
     Dates: start: 200903
  10. ADVIL [Concomitant]
     Active Substance: IBUPROFEN
  11. XYREM [Suspect]
     Active Substance: SODIUM OXYBATE
     Indication: FIBROMYALGIA
     Dosage: 2.5 G, BID
     Route: 048
     Dates: start: 200605, end: 200608
  12. RELPAX [Concomitant]
     Active Substance: ELETRIPTAN HYDROBROMIDE
  13. CHOLESTYRAMINE. [Concomitant]
     Active Substance: CHOLESTYRAMINE
  14. KLONOPIN [Concomitant]
     Active Substance: CLONAZEPAM
  15. MIRALAX [Concomitant]
     Active Substance: POLYETHYLENE GLYCOL 3350
  16. OXYCONTIN [Concomitant]
     Active Substance: OXYCODONE HYDROCHLORIDE
  17. REMERON [Concomitant]
     Active Substance: MIRTAZAPINE
  18. ZOFRAN [Concomitant]
     Active Substance: ONDANSETRON HYDROCHLORIDE
  19. XYREM [Suspect]
     Active Substance: SODIUM OXYBATE
     Dosage: DOSE ADJUSTMENTS
     Route: 048
  20. FIORICET [Concomitant]
     Active Substance: ACETAMINOPHEN\BUTALBITAL\CAFFEINE
  21. BLOCADREN [Concomitant]
     Active Substance: TIMOLOL MALEATE
  22. MIRAPEX [Concomitant]
     Active Substance: PRAMIPEXOLE DIHYDROCHLORIDE
  23. NIZORAL [Concomitant]
     Active Substance: KETOCONAZOLE
  24. PREVACID [Concomitant]
     Active Substance: LANSOPRAZOLE
  25. PROGESTERONE. [Concomitant]
     Active Substance: PROGESTERONE
  26. COMPAZINE [Concomitant]
     Active Substance: PROCHLORPERAZINE MALEATE
  27. LYRICA [Concomitant]
     Active Substance: PREGABALIN
  28. METFORMIN [Concomitant]
     Active Substance: METFORMIN HYDROCHLORIDE
  29. REGLAN [Concomitant]
     Active Substance: METOCLOPRAMIDE HYDROCHLORIDE
  30. SYNTHROID [Concomitant]
     Active Substance: LEVOTHYROXINE SODIUM
  31. TIMOLOL. [Concomitant]
     Active Substance: TIMOLOL
  32. VITAMIN C [Concomitant]
     Active Substance: ASCORBIC ACID
  33. CLARITIN [Concomitant]
     Active Substance: LORATADINE
  34. CYTOMEL [Concomitant]
     Active Substance: LIOTHYRONINE SODIUM

REACTIONS (3)
  - Pre-existing condition improved [Unknown]
  - Anaemia [Unknown]
  - Weight decreased [Unknown]

NARRATIVE: CASE EVENT DATE: 201504
